FAERS Safety Report 16735272 (Version 4)
Quarter: 2019Q4

REPORT INFORMATION
  Report Type: Report from Study
  Country: DE (occurrence: DE)
  Receive Date: 20190823
  Receipt Date: 20191227
  Transmission Date: 20200122
  Serious: Yes (Hospitalization, Other)
  Sender: FDA-Public Use
  Company Number: DE-ACTELION-A-CH2019-194437

PATIENT
  Age: 65 Year
  Sex: Female
  Weight: 70 kg

DRUGS (6)
  1. VELETRI [Suspect]
     Active Substance: EPOPROSTENOL
     Indication: PULMONARY ARTERIAL HYPERTENSION
     Dosage: 7.5 NG/KG, PER MIN
     Route: 042
     Dates: start: 20190204
  2. TORASEMID [Concomitant]
     Active Substance: TORSEMIDE
     Indication: PULMONARY ARTERIAL HYPERTENSION
     Dosage: 100 MG A.M. AND 50 MG P.M
     Route: 048
     Dates: start: 201801
  3. OPSUMIT [Suspect]
     Active Substance: MACITENTAN
     Indication: PULMONARY ARTERIAL HYPERTENSION
     Dosage: 10 MG, QD
     Route: 048
     Dates: start: 201706
  4. VELETRI [Suspect]
     Active Substance: EPOPROSTENOL
     Dosage: 7.14 NG/KG, PER MIN
     Route: 042
     Dates: start: 20181208
  5. SILDENAFIL. [Concomitant]
     Active Substance: SILDENAFIL
     Indication: PULMONARY ARTERIAL HYPERTENSION
     Dosage: 20 MG, TID
     Route: 048
     Dates: start: 201701
  6. SPIRONOLACTONE. [Concomitant]
     Active Substance: SPIRONOLACTONE
     Indication: PULMONARY ARTERIAL HYPERTENSION
     Dosage: 100 MG, QD
     Route: 048
     Dates: start: 201708

REACTIONS (15)
  - Erythema [Recovered/Resolved]
  - Erysipelas [Unknown]
  - C-reactive protein increased [Unknown]
  - Pain [Unknown]
  - Oedema [Unknown]
  - Catheter placement [Unknown]
  - Lymphoedema [Recovered/Resolved]
  - Feeling hot [Recovered/Resolved]
  - Hypertension [Unknown]
  - General physical health deterioration [Unknown]
  - Cardiac failure [Unknown]
  - Dyspnoea [Unknown]
  - Peripheral venous disease [Recovered/Resolved]
  - Varicose vein [Recovered/Resolved]
  - Asthenia [Unknown]

NARRATIVE: CASE EVENT DATE: 201906
